FAERS Safety Report 8547463-8 (Version None)
Quarter: 2012Q3

REPORT INFORMATION
  Report Type: 
  Country: None (occurrence: None)
  Receive Date: 20120727
  Receipt Date: 20120419
  Transmission Date: 20120928
  Serious: No
  Sender: FDA-Public Use
  Company Number: US-ASTRAZENECA-2012SE25687

PATIENT
  Age: 53 Year
  Sex: Male
  Weight: 97.5 kg

DRUGS (4)
  1. LITHIUM CARBONATE [Concomitant]
     Dosage: 600 MG IN THE MORNING AND 1200 MG AT NIGHT. TOTAL DAILY DOSE 1800 MG
  2. THYROID TAB [Concomitant]
  3. SEROQUEL [Suspect]
     Indication: BIPOLAR DISORDER
     Route: 048
  4. CRESTOR [Suspect]
     Indication: BLOOD TRIGLYCERIDES INCREASED
     Route: 048

REACTIONS (6)
  - TREMOR [None]
  - INSOMNIA [None]
  - NERVOUSNESS [None]
  - BLOOD TRIGLYCERIDES INCREASED [None]
  - SOMNOLENCE [None]
  - INTENTIONAL DRUG MISUSE [None]
